FAERS Safety Report 21022549 (Version 1)
Quarter: 2022Q2

REPORT INFORMATION
  Report Type: Spontaneous
  Country: IT (occurrence: IT)
  Receive Date: 20220629
  Receipt Date: 20220629
  Transmission Date: 20220721
  Serious: Yes (Other)
  Sender: FDA-Public Use
  Company Number: None

PATIENT
  Age: 56 Year
  Sex: Male

DRUGS (7)
  1. RAMIPRIL [Suspect]
     Active Substance: RAMIPRIL
     Indication: Hypertension
     Route: 048
     Dates: start: 20210101, end: 20220220
  2. BISOPROLOL FUMARATE [Suspect]
     Active Substance: BISOPROLOL FUMARATE
     Indication: Hypertension
     Route: 048
     Dates: start: 20210101, end: 20220220
  3. LASIX [Suspect]
     Active Substance: FUROSEMIDE
     Indication: Hypertension
     Route: 048
     Dates: start: 20210101, end: 20220220
  4. ALDACTONE [Concomitant]
     Active Substance: SPIRONOLACTONE
  5. AMIODARONE [Concomitant]
     Active Substance: AMIODARONE
  6. ELIQUIS [Concomitant]
     Active Substance: APIXABAN
  7. LEVOTHYROXINE SODIUM [Concomitant]
     Active Substance: LEVOTHYROXINE SODIUM

REACTIONS (3)
  - Presyncope [Recovering/Resolving]
  - Orthostatic hypotension [Recovering/Resolving]
  - Bradycardia [Recovering/Resolving]

NARRATIVE: CASE EVENT DATE: 20220220
